FAERS Safety Report 7190230-0 (Version None)
Quarter: 2010Q4

REPORT INFORMATION
  Report Type: 
  Country: None (occurrence: None)
  Receive Date: 20101221
  Receipt Date: 20101221
  Transmission Date: 20110411
  Serious: Yes (Life-Threatening, Hospitalization)
  Sender: FDA-Public Use
  Company Number: None

PATIENT
  Age: 3 Year
  Sex: Male

DRUGS (4)
  1. CEFDINIR [Suspect]
     Indication: EAR INFECTION
     Dates: start: 20101116, end: 20101118
  2. CEFDINIR [Suspect]
     Indication: EAR INFECTION
     Dates: start: 20101117, end: 20101118
  3. ROCETHRIN [Concomitant]
  4. ZITHROMAX [Concomitant]

REACTIONS (3)
  - NO THERAPEUTIC RESPONSE [None]
  - PRODUCT CONTAMINATION [None]
  - PRODUCT ODOUR ABNORMAL [None]
